FAERS Safety Report 17854828 (Version 2)
Quarter: 2020Q2

REPORT INFORMATION
  Report Type: Spontaneous
  Country: US (occurrence: US)
  Receive Date: 20200603
  Receipt Date: 20200623
  Transmission Date: 20200714
  Serious: No
  Sender: FDA-Public Use
  Company Number: US-PFIZER INC-2020215254

PATIENT
  Age: 77 Year
  Sex: Female

DRUGS (2)
  1. INLYTA [Suspect]
     Active Substance: AXITINIB
     Dosage: 5 MG
     Dates: start: 20200514
  2. INLYTA [Suspect]
     Active Substance: AXITINIB
     Dosage: 5 MG
     Dates: start: 20200602

REACTIONS (5)
  - Blister [Unknown]
  - Dizziness [Unknown]
  - Diarrhoea [Unknown]
  - Dysphonia [Unknown]
  - Eye swelling [Unknown]

NARRATIVE: CASE EVENT DATE: 2020
